FAERS Safety Report 21379471 (Version 1)
Quarter: 2022Q3

REPORT INFORMATION
  Report Type: Spontaneous
  Country: None (occurrence: US)
  Receive Date: 20220927
  Receipt Date: 20220927
  Transmission Date: 20221027
  Serious: Yes (Other)
  Sender: FDA-Public Use
  Company Number: US-Vero Biotech-2133214

PATIENT
  Age: 4 Month

DRUGS (2)
  1. GENOSYL [Suspect]
     Active Substance: NITRIC OXIDE
     Indication: Product used for unknown indication
     Route: 055
  2. GENOSYL [Suspect]
     Active Substance: NITRIC OXIDE

REACTIONS (4)
  - Oxygen saturation decreased [Recovered/Resolved]
  - Drug level fluctuating [None]
  - Device failure [None]
  - Device delivery system issue [None]

NARRATIVE: CASE EVENT DATE: 20220720
